FAERS Safety Report 12807586 (Version 1)
Quarter: 2016Q4

REPORT INFORMATION
  Report Type: Spontaneous
  Country: PA (occurrence: PA)
  Receive Date: 20161004
  Receipt Date: 20161004
  Transmission Date: 20170207
  Serious: Yes (Hospitalization)
  Sender: FDA-Public Use
  Company Number: PHHY2016PA135073

PATIENT
  Sex: Male

DRUGS (1)
  1. SANDOSTATIN LAR DEPOT [Suspect]
     Active Substance: OCTREOTIDE ACETATE
     Indication: PRODUCT USED FOR UNKNOWN INDICATION
     Route: 065

REACTIONS (9)
  - Intestinal obstruction [Unknown]
  - Memory impairment [Unknown]
  - Postoperative adhesion [Unknown]
  - Postoperative wound infection [Unknown]
  - Malaise [Recovering/Resolving]
  - Mental disorder [Unknown]
  - Coordination abnormal [Recovering/Resolving]
  - Post procedural complication [Unknown]
  - General physical health deterioration [Unknown]
